FAERS Safety Report 10658122 (Version 3)
Quarter: 2015Q1

REPORT INFORMATION
  Report Type: Spontaneous
  Country: IT (occurrence: IT)
  Receive Date: 20141217
  Receipt Date: 20150227
  Transmission Date: 20150720
  Serious: Yes (Disabling)
  Sender: FDA-Public Use
  Company Number: PHHY2014IT163151

PATIENT
  Age: 76 Year
  Sex: Female

DRUGS (4)
  1. ZOMETA [Suspect]
     Active Substance: ZOLEDRONIC ACID
     Indication: METASTASES TO BONE
     Dosage: 04 MG, MONTHLY
     Route: 042
     Dates: start: 20100701, end: 20120601
  2. AVASTIN [Suspect]
     Active Substance: BEVACIZUMAB
     Indication: BREAST CANCER
     Dosage: 15 MG/KG, CYCLIC
     Route: 042
     Dates: start: 20100701, end: 20121001
  3. PACLITAXEL STRAGEN [Concomitant]
     Indication: BREAST CANCER
     Dosage: 175 MG/M2, UNK
     Route: 042
  4. DENOSUMAB [Suspect]
     Active Substance: DENOSUMAB
     Indication: METASTASES TO BONE
     Dosage: 120 UG, CYCLIC
     Route: 058
     Dates: start: 20120701, end: 20121001

REACTIONS (1)
  - Osteonecrosis [Recovered/Resolved with Sequelae]

NARRATIVE: CASE EVENT DATE: 20121001
